FAERS Safety Report 4727591-5 (Version None)
Quarter: 2005Q3

REPORT INFORMATION
  Report Type: 
  Country: None (occurrence: None)
  Receive Date: 20050727
  Receipt Date: 20050727
  Transmission Date: 20060218
  Serious: Yes (Life-Threatening, Disabling)
  Sender: FDA-Public Use
  Company Number: None

PATIENT
  Sex: Female
  Weight: 69.8539 kg

DRUGS (5)
  1. LIPITOR [Suspect]
     Indication: HYPERCHOLESTEROLAEMIA
     Dosage: 40MG   ONCE/DAY   ORAL
     Route: 047
     Dates: start: 20031123, end: 20040804
  2. TRICOR [Suspect]
     Indication: HYPERCHOLESTEROLAEMIA
     Dosage: 48MG+20MG    ONCE/DAY   ORAL
     Route: 048
     Dates: start: 20041129, end: 20050305
  3. TRICOR [Suspect]
     Indication: HYPERLIPIDAEMIA
     Dosage: 48MG+20MG    ONCE/DAY   ORAL
     Route: 048
     Dates: start: 20041129, end: 20050305
  4. PREVACID [Concomitant]
  5. ACIPHEX [Concomitant]

REACTIONS (6)
  - COUGH [None]
  - DIZZINESS [None]
  - DYSPNOEA [None]
  - HYPERHIDROSIS [None]
  - MUSCULAR WEAKNESS [None]
  - PRODUCTIVE COUGH [None]
